FAERS Safety Report 20715900 (Version 1)
Quarter: 2022Q2

REPORT INFORMATION
  Report Type: Report from Study
  Country: US (occurrence: US)
  Receive Date: 20220415
  Receipt Date: 20220415
  Transmission Date: 20220721
  Serious: Yes (Death)
  Sender: FDA-Public Use
  Company Number: US-ABBVIE-22K-163-4359537-00

PATIENT
  Sex: Male

DRUGS (1)
  1. VENCLEXTA [Suspect]
     Active Substance: VENETOCLAX
     Indication: Chronic lymphocytic leukaemia
     Dosage: AT THE TIME OF DEATH PATIENT WAS ON VENCLEXTA
     Route: 048
     Dates: start: 202107

REACTIONS (2)
  - Pneumothorax [Fatal]
  - Pulmonary oedema [Fatal]
